FAERS Safety Report 21153973 (Version 1)
Quarter: 2022Q3

REPORT INFORMATION
  Report Type: Spontaneous
  Country: US (occurrence: US)
  Receive Date: 20220801
  Receipt Date: 20220801
  Transmission Date: 20221026
  Serious: No
  Sender: FDA-Public Use
  Company Number: US-GLAXOSMITHKLINE-USCH2022026491

PATIENT
  Age: 74 Year
  Sex: Male

DRUGS (2)
  1. NICODERM CQ [Suspect]
     Active Substance: NICOTINE
     Indication: Tobacco user
     Dosage: UNK
     Dates: start: 20220726
  2. NICORETTE [Suspect]
     Active Substance: NICOTINE
     Indication: Tobacco user
     Dosage: UNK
     Dates: start: 20220607, end: 20220725

REACTIONS (4)
  - Chills [Unknown]
  - Dizziness [Unknown]
  - Malaise [Unknown]
  - Stomatitis [Recovered/Resolved]

NARRATIVE: CASE EVENT DATE: 20220711
